FAERS Safety Report 18929400 (Version 2)
Quarter: 2021Q1

REPORT INFORMATION
  Report Type: Report from Study
  Country: CO (occurrence: CO)
  Receive Date: 20210223
  Receipt Date: 20210304
  Transmission Date: 20210420
  Serious: Yes (Hospitalization, Other)
  Sender: FDA-Public Use
  Company Number: CO-BAYER-2021-070368

PATIENT
  Age: 39 Year
  Sex: Female

DRUGS (4)
  1. ADEMPAS [Suspect]
     Active Substance: RIOCIGUAT
     Indication: PULMONARY ARTERIAL HYPERTENSION
     Dosage: 2 MG
     Route: 048
     Dates: start: 2020
  2. ADEMPAS [Suspect]
     Active Substance: RIOCIGUAT
     Indication: PULMONARY ARTERIAL HYPERTENSION
     Dosage: UNK
     Dates: start: 20181130
  3. ADEMPAS [Suspect]
     Active Substance: RIOCIGUAT
     Indication: PULMONARY ARTERIAL HYPERTENSION
     Dosage: 2 MG
     Route: 048
  4. ADEMPAS [Suspect]
     Active Substance: RIOCIGUAT
     Indication: PULMONARY ARTERIAL HYPERTENSION
     Dosage: 2.5 MG, Q8HR
     Route: 048
     Dates: start: 202102

REACTIONS (10)
  - Vomiting [None]
  - Lung disorder [None]
  - Oedema peripheral [None]
  - Loss of consciousness [None]
  - Product prescribing issue [None]
  - Somnolence [None]
  - Dyspnoea [None]
  - Fluid retention [None]
  - Syncope [None]
  - Eructation [None]

NARRATIVE: CASE EVENT DATE: 202102
